FAERS Safety Report 18739614 (Version 1)
Quarter: 2021Q1

REPORT INFORMATION
  Report Type: Spontaneous
  Country: US (occurrence: US)
  Receive Date: 20210113
  Receipt Date: 20210113
  Transmission Date: 20210419
  Serious: No
  Sender: FDA-Public Use
  Company Number: None

PATIENT
  Age: 58 Year
  Sex: Male
  Weight: 73.48 kg

DRUGS (2)
  1. TALTZ [Suspect]
     Active Substance: IXEKIZUMAB
     Indication: PSORIASIS
     Dosage: ?          OTHER FREQUENCY:WEEK 0;?
     Dates: start: 202009
  2. TALTZ [Concomitant]
     Active Substance: IXEKIZUMAB
     Dosage: ?          OTHER FREQUENCY:WEEK 2;?
     Route: 058

REACTIONS (1)
  - Ear infection [None]
